FAERS Safety Report 7971758-X (Version None)
Quarter: 2011Q4

REPORT INFORMATION
  Report Type: 
  Country: None (occurrence: None)
  Receive Date: 20111212
  Receipt Date: 20111205
  Transmission Date: 20120403
  Serious: Yes (Other)
  Sender: FDA-Public Use
  Company Number: CHPA2011US017458

PATIENT
  Age: 74 Year
  Sex: Male
  Weight: 102.4 kg

DRUGS (13)
  1. MICONAZOLE NITRATE [Suspect]
     Indication: PRURITUS
     Dosage: APPLIED IN MORNING AFTER SHOWER
     Route: 061
     Dates: start: 20080101
  2. MAGIC MOUTHWASH [Concomitant]
     Indication: LICHEN PLANUS
     Dosage: UNK, QAM
     Route: 048
     Dates: start: 20070101
  3. IBUPROFEN [Concomitant]
     Indication: BACK PAIN
     Dosage: 800 MG, TID
     Route: 048
     Dates: start: 20110101, end: 20110101
  4. BENADRYL ^WARNER-LAMBERT^               /USA/ [Concomitant]
     Indication: MULTIPLE ALLERGIES
     Dosage: 25 MG, UNK
     Route: 048
  5. PROZAC [Concomitant]
     Indication: STRESS
     Dosage: 20 MG, QD
     Route: 048
  6. TENORMIN [Concomitant]
     Indication: HYPERTENSION
     Dosage: UNK, QD
     Route: 048
  7. PROTONIX [Concomitant]
     Indication: ABDOMINAL DISCOMFORT
     Dosage: UNK, QD
     Route: 048
     Dates: start: 20110101
  8. DRUG THERAPY NOS [Concomitant]
     Indication: LICHEN PLANUS
     Dosage: UNK, QHS
     Route: 048
     Dates: start: 20070101
  9. LIPITOR [Concomitant]
     Indication: BLOOD CHOLESTEROL INCREASED
     Dosage: UNK DF, UNK
     Route: 048
  10. ULTRACET [Concomitant]
     Indication: BACK PAIN
     Dosage: UNK DF, UNK
     Route: 048
     Dates: end: 20110101
  11. IBUPROFEN [Concomitant]
     Dosage: 800 QAM/400 EVERY NOON/400 QPM
     Route: 048
     Dates: start: 20110101
  12. XANAX [Concomitant]
     Indication: STRESS
     Dosage: 0.5 OR 1 MG, QD
     Route: 048
  13. VYTORIN [Concomitant]
     Indication: BLOOD CHOLESTEROL INCREASED
     Dosage: UNK, QD
     Route: 048

REACTIONS (3)
  - INCORRECT DRUG ADMINISTRATION DURATION [None]
  - DYSURIA [None]
  - OFF LABEL USE [None]
